FAERS Safety Report 19039707 (Version 1)
Quarter: 2021Q1

REPORT INFORMATION
  Report Type: Spontaneous
  Country: US (occurrence: US)
  Receive Date: 20210322
  Receipt Date: 20210322
  Transmission Date: 20210420
  Serious: Yes (Death, Other)
  Sender: FDA-Public Use
  Company Number: US-SA-2021SA095872

PATIENT
  Age: 55 Year
  Sex: Female

DRUGS (2)
  1. ZANTAC [Suspect]
     Active Substance: RANITIDINE HYDROCHLORIDE
     Indication: DYSPEPSIA
  2. ZANTAC [Suspect]
     Active Substance: RANITIDINE HYDROCHLORIDE
     Indication: GASTROOESOPHAGEAL REFLUX DISEASE
     Dosage: 150 MG
     Route: 065
     Dates: start: 200601, end: 201904

REACTIONS (4)
  - Renal cancer stage IV [Fatal]
  - Hepatic cancer [Fatal]
  - Lung carcinoma cell type unspecified stage IV [Fatal]
  - Colorectal cancer stage IV [Fatal]

NARRATIVE: CASE EVENT DATE: 20180101
